FAERS Safety Report 5312552-8 (Version None)
Quarter: 2007Q2

REPORT INFORMATION
  Report Type: 
  Country: None (occurrence: None)
  Receive Date: 20070430
  Receipt Date: 20070102
  Transmission Date: 20071010
  Serious: No
  Sender: FDA-Public Use
  Company Number: 2007UW00068

PATIENT
  Age: 61 Year
  Sex: Female
  Weight: 65.3 kg

DRUGS (1)
  1. NEXIUM [Suspect]
     Indication: GASTROOESOPHAGEAL REFLUX DISEASE
     Route: 048
     Dates: start: 20040101

REACTIONS (2)
  - CALCIUM DEFICIENCY [None]
  - HEPATIC ENZYME INCREASED [None]
